FAERS Safety Report 25447401 (Version 1)
Quarter: 2025Q2

REPORT INFORMATION
  Report Type: Spontaneous
  Country: US (occurrence: US)
  Receive Date: 20250617
  Receipt Date: 20250617
  Transmission Date: 20250716
  Serious: No
  Sender: SANOFI AVENTIS
  Company Number: US-SA-2025SA171084

PATIENT

DRUGS (2)
  1. LANTUS [Suspect]
     Active Substance: INSULIN GLARGINE
     Indication: Diabetes mellitus
     Dosage: 22 IU, QD
     Dates: start: 202502, end: 2025
  2. LANTUS [Suspect]
     Active Substance: INSULIN GLARGINE
     Dosage: 18 IU, QD
     Route: 065
     Dates: start: 20250528

REACTIONS (1)
  - Off label use [Unknown]
